FAERS Safety Report 7636806-5 (Version None)
Quarter: 2011Q3

REPORT INFORMATION
  Report Type: 
  Country: None (occurrence: None)
  Receive Date: 20110726
  Receipt Date: 20110718
  Transmission Date: 20111222
  Serious: Yes (Hospitalization, Other)
  Sender: FDA-Public Use
  Company Number: US-ASTRAZENECA-2009UW19097

PATIENT
  Age: 16129 Day
  Sex: Male
  Weight: 125.2 kg

DRUGS (22)
  1. SOMA [Concomitant]
  2. SEROQUEL [Suspect]
     Indication: BIPOLAR I DISORDER
     Route: 048
     Dates: start: 20070126, end: 20080301
  3. SEROQUEL [Suspect]
     Route: 048
     Dates: start: 20080316
  4. CARTIA XT [Concomitant]
     Dates: start: 20070801
  5. CYMBALTA [Concomitant]
  6. PAXIL [Concomitant]
     Dates: start: 20010101
  7. NEURONTIN [Concomitant]
     Dates: start: 20100701
  8. SEROQUEL [Suspect]
     Route: 048
     Dates: start: 20070615
  9. LAMICTAL [Concomitant]
     Dates: start: 20070126
  10. METOPROLOL TARTRATE [Concomitant]
     Dates: start: 20070801
  11. VALIUM [Concomitant]
     Indication: ANXIETY
     Dosage: ONCE OR TWICE DAILY
     Dates: start: 20000312
  12. HYDROCODONE BITARTRATE [Concomitant]
     Dosage: 10/650 MG
     Dates: start: 20100701
  13. CARTIA XT [Concomitant]
  14. DEPAKOTE [Concomitant]
     Dates: start: 20010101
  15. VALIUM [Concomitant]
  16. VALIUM [Concomitant]
     Dates: start: 20100701
  17. ASPIRIN [Concomitant]
  18. DIAZEPAM [Concomitant]
     Dates: start: 20070905
  19. ZYPREXA [Concomitant]
     Dates: start: 20010101
  20. LEXAPRO [Concomitant]
     Dates: start: 20080301, end: 20080801
  21. LORTAB [Concomitant]
     Dosage: 10/650 MG THREE TIMES DAILY
  22. CELEBREX [Concomitant]
     Dosage: ONCE A DAY
     Dates: start: 20000312

REACTIONS (16)
  - DIABETES MELLITUS INADEQUATE CONTROL [None]
  - DIABETIC GASTROPARESIS [None]
  - DIABETIC COMA [None]
  - PANCREATITIS CHRONIC [None]
  - BLOOD TRIGLYCERIDES INCREASED [None]
  - GLUCOSE TOLERANCE IMPAIRED [None]
  - DYSLIPIDAEMIA [None]
  - TYPE 1 DIABETES MELLITUS [None]
  - BLOOD CHOLESTEROL INCREASED [None]
  - PANCREATITIS [None]
  - HYPERLIPIDAEMIA [None]
  - DIABETIC KETOACIDOSIS [None]
  - OVERDOSE [None]
  - NEUROPATHY PERIPHERAL [None]
  - DIABETIC NEUROPATHY [None]
  - TYPE 2 DIABETES MELLITUS [None]
